FAERS Safety Report 10078331 (Version 4)
Quarter: 2014Q4

REPORT INFORMATION
  Report Type: Spontaneous
  Country: US (occurrence: US)
  Receive Date: 20140415
  Receipt Date: 20141223
  Transmission Date: 20150528
  Serious: Yes (Other)
  Sender: FDA-Public Use
  Company Number: US-AMGEN-USASP2014026857

PATIENT
  Age: 59 Year
  Sex: Female
  Weight: 72.56 kg

DRUGS (6)
  1. VOLTAREN [Concomitant]
     Active Substance: DICLOFENAC SODIUM
     Dosage: 4 G (1% TOPICAL GEL), AS NECESSARY
     Route: 061
     Dates: start: 20100218
  2. PROAIR HFA [Concomitant]
     Active Substance: ALBUTEROL SULFATE
     Dosage: 90 MUG, AS NECESSARY INHALET
     Dates: start: 20110411
  3. ENBREL [Suspect]
     Active Substance: ETANERCEPT
     Indication: PSORIATIC ARTHROPATHY
     Dosage: 50 MG, QWK
     Route: 058
     Dates: start: 20120619
  4. AMLODIPINE [Concomitant]
     Active Substance: AMLODIPINE BESYLATE
     Dosage: 220 MG, ^Q 120^ AS NECESSARY
     Route: 048
     Dates: start: 20130904
  5. PREMARIN [Concomitant]
     Active Substance: ESTROGENS, CONJUGATED
     Dosage: 0.3 MG, QD
     Route: 048
     Dates: start: 20140303
  6. HUMIRA [Concomitant]
     Active Substance: ADALIMUMAB
     Indication: PSORIATIC ARTHROPATHY
     Dosage: UNK

REACTIONS (6)
  - Psoriatic arthropathy [Not Recovered/Not Resolved]
  - Metastases to spine [Recovering/Resolving]
  - Cervical vertebral fracture [Unknown]
  - Injection site pain [Unknown]
  - Breast cancer [Recovered/Resolved]
  - Neck pain [Unknown]

NARRATIVE: CASE EVENT DATE: 201310
